FAERS Safety Report 19973445 (Version 1)
Quarter: 2021Q4

REPORT INFORMATION
  Report Type: Spontaneous
  Country: US (occurrence: US)
  Receive Date: 20211020
  Receipt Date: 20211020
  Transmission Date: 20220303
  Serious: No
  Sender: FDA-Public Use
  Company Number: None

PATIENT
  Sex: Female

DRUGS (6)
  1. MYCAPSSA [Suspect]
     Active Substance: OCTREOTIDE
     Indication: Acromegaly
     Route: 048
  2. MYCAPSSA [Suspect]
     Active Substance: OCTREOTIDE
     Indication: Hypothalamo-pituitary disorder
  3. CELEXA [Concomitant]
     Active Substance: CITALOPRAM HYDROBROMIDE
  4. NIZORAL [Concomitant]
     Active Substance: KETOCONAZOLE
  5. KEPPRA [Concomitant]
     Active Substance: LEVETIRACETAM
  6. DEPO-PROVERA CONTRACEPTIV [Concomitant]

REACTIONS (2)
  - Product storage error [None]
  - Therapy interrupted [None]
